FAERS Safety Report 11198373 (Version 1)
Quarter: 2015Q2

REPORT INFORMATION
  Report Type: Spontaneous
  Country: US (occurrence: None)
  Receive Date: 20150615
  Receipt Date: 20150615
  Transmission Date: 20150821
  Serious: Yes (Hospitalization, Disabling)
  Sender: FDA-Public Use
  Company Number: None

PATIENT
  Age: 30 Year
  Sex: Male
  Weight: 63.5 kg

DRUGS (13)
  1. PROBIOTIC [Concomitant]
     Active Substance: PROBIOTICS NOS
  2. AMYTRYPTILINE [Concomitant]
  3. NALTREXONE [Concomitant]
     Active Substance: NALTREXONE
  4. GABAPENTIN. [Concomitant]
     Active Substance: GABAPENTIN
  5. CIPROFLAXIN [Suspect]
     Active Substance: CIPROFLOXACIN
     Indication: URINARY TRACT INFECTION
     Dosage: DATFE OF USE: SEVERAL
     Route: 048
  6. DITROPAN [Concomitant]
     Active Substance: OXYBUTYNIN CHLORIDE
  7. SENNA [Concomitant]
     Active Substance: SENNA LEAF\SENNOSIDES\SENNOSIDES A AND B
  8. CRANBERRY SUPPLEMENT [Concomitant]
  9. MULTIVITAMIN [Concomitant]
     Active Substance: VITAMINS
  10. COLACE [Concomitant]
     Active Substance: DOCUSATE SODIUM
  11. POWER WHEELCHAIR [Concomitant]
  12. ALPHA LIPOIC ACID [Concomitant]
     Active Substance: .ALPHA.-LIPOIC ACID
  13. CLONAZEPAM. [Concomitant]
     Active Substance: CLONAZEPAM

REACTIONS (8)
  - Neuropathy peripheral [None]
  - Formication [None]
  - Toxicity to various agents [None]
  - Tinnitus [None]
  - Insomnia [None]
  - Asthenia [None]
  - Neuralgia [None]
  - Tendon disorder [None]

NARRATIVE: CASE EVENT DATE: 20140715
